FAERS Safety Report 7555796-7 (Version None)
Quarter: 2011Q2

REPORT INFORMATION
  Report Type: 
  Country: None (occurrence: None)
  Receive Date: 20110618
  Receipt Date: 20110603
  Transmission Date: 20111010
  Serious: Yes (Other)
  Sender: FDA-Public Use
  Company Number: US-BAYER-2011-047843

PATIENT
  Age: 15 Year
  Sex: Female

DRUGS (6)
  1. ACETYLSALICYLIC ACID SRT [Suspect]
     Dosage: 25 MG, ONCE
     Route: 048
  2. ACETYLSALICYLIC ACID SRT [Suspect]
     Dosage: 90 MG, ONCE
     Route: 048
  3. ACETYLSALICYLIC ACID SRT [Suspect]
     Dosage: 200 MG, ONCE
     Route: 048
  4. ACETYLSALICYLIC ACID SRT [Suspect]
     Dosage: 50 MG, ONCE
     Route: 048
  5. ACETYLSALICYLIC ACID SRT [Suspect]
     Dosage: 150 MG, ONCE
     Route: 048
  6. ACETYLSALICYLIC ACID SRT [Suspect]
     Indication: DRUG HYPERSENSITIVITY
     Dosage: 10 MG, ONCE
     Route: 048

REACTIONS (6)
  - PEAK EXPIRATORY FLOW RATE DECREASED [None]
  - DRUG HYPERSENSITIVITY [None]
  - NASAL CONGESTION [None]
  - EYE IRRITATION [None]
  - UPPER-AIRWAY COUGH SYNDROME [None]
  - CHEST DISCOMFORT [None]
